FAERS Safety Report 23126569 (Version 1)
Quarter: 2023Q4

REPORT INFORMATION
  Report Type: Spontaneous
  Country: US (occurrence: US)
  Receive Date: 20231030
  Receipt Date: 20231030
  Transmission Date: 20240110
  Serious: Yes (Other)
  Sender: FDA-Public Use
  Company Number: US-GLK-002279

PATIENT
  Age: 25 Year
  Sex: Male

DRUGS (3)
  1. PHOTREXA VISCOUS [Suspect]
     Active Substance: RIBOFLAVIN 5^-PHOSPHATE SODIUM
     Indication: Keratoconus
     Dosage: RIGHT EYE
     Route: 047
     Dates: start: 20231012, end: 20231012
  2. PHOTREXA [Suspect]
     Active Substance: RIBOFLAVIN 5^-PHOSPHATE SODIUM
     Indication: Keratoconus
     Dosage: RIGHT EYE
     Route: 047
     Dates: start: 20231012, end: 20231012
  3. DEVICE [Suspect]
     Active Substance: DEVICE

REACTIONS (4)
  - Eye infection bacterial [Not Recovered/Not Resolved]
  - Eye swelling [Not Recovered/Not Resolved]
  - Ulcerative keratitis [Not Recovered/Not Resolved]
  - Eye irritation [Not Recovered/Not Resolved]

NARRATIVE: CASE EVENT DATE: 20231001
